FAERS Safety Report 9449835 (Version 1)
Quarter: 2013Q3

REPORT INFORMATION
  Report Type: Spontaneous
  Country: FR (occurrence: FR)
  Receive Date: 20130809
  Receipt Date: 20130809
  Transmission Date: 20140515
  Serious: Yes (Other)
  Sender: FDA-Public Use
  Company Number: PHHY2013FR085448

PATIENT
  Age: 63 Year
  Sex: Male

DRUGS (3)
  1. ZOMETA [Suspect]
     Dosage: UNK
     Route: 041
     Dates: start: 200507, end: 20070130
  2. ZOMETA [Suspect]
     Dosage: UNK
     Dates: start: 20090511, end: 20110311
  3. SUTENT [Suspect]
     Indication: RENAL CANCER
     Dosage: 50 MG, QD
     Dates: start: 20050330

REACTIONS (1)
  - Osteonecrosis of jaw [Recovered/Resolved with Sequelae]
